FAERS Safety Report 16211565 (Version 1)
Quarter: 2019Q2

REPORT INFORMATION
  Report Type: Spontaneous
  Country: US (occurrence: US)
  Receive Date: 20190417
  Receipt Date: 20190417
  Transmission Date: 20190711
  Serious: Yes (Hospitalization)
  Sender: FDA-Public Use
  Company Number: None

PATIENT
  Sex: Male

DRUGS (4)
  1. FIBERCON [Concomitant]
     Active Substance: CALCIUM POLYCARBOPHIL
  2. DIPHEN/ATROP [Concomitant]
     Active Substance: ATROPINE SULFATE\DIPHENOXYLATE
  3. LOPERAMIDE [Concomitant]
     Active Substance: LOPERAMIDE
  4. OCTREOTIDE. [Suspect]
     Active Substance: OCTREOTIDE
     Indication: ENTEROSTOMY
     Dosage: ?          OTHER FREQUENCY:3 TIMES DAILY;?
     Route: 058

REACTIONS (1)
  - Hospitalisation [None]
